FAERS Safety Report 12433782 (Version 2)
Quarter: 2016Q3

REPORT INFORMATION
  Report Type: Spontaneous
  Country: CA (occurrence: CA)
  Receive Date: 20160603
  Receipt Date: 20160928
  Transmission Date: 20161109
  Serious: Yes (Other)
  Sender: FDA-Public Use
  Company Number: CA-MALLINCKRODT-T201602231

PATIENT
  Sex: Male

DRUGS (2)
  1. TECHNETIUM TC-99M SESTAMIBI KIT [Suspect]
     Active Substance: TECHNETIUM TC-99M SESTAMIBI
     Indication: CARDIAC STRESS TEST
     Dosage: UNK
     Route: 065
  2. ULTRA-TECHNEKOW DTE [Suspect]
     Active Substance: TECHNETIUM TC-99M SODIUM PERTECHNETATE
     Indication: CARDIAC STRESS TEST
     Dosage: 29 MCI, SINGLE
     Route: 065

REACTIONS (3)
  - Pharyngeal oedema [Recovered/Resolved]
  - Throat irritation [Recovered/Resolved]
  - Urticaria [Not Recovered/Not Resolved]

NARRATIVE: CASE EVENT DATE: 20160527
